FAERS Safety Report 4902601-0 (Version None)
Quarter: 2006Q1

REPORT INFORMATION
  Report Type: 
  Country: None (occurrence: None)
  Receive Date: 20060207
  Receipt Date: 20060126
  Transmission Date: 20060701
  Serious: No
  Sender: FDA-Public Use
  Company Number: PHBS2006BE01639

PATIENT
  Age: 66 Year
  Sex: Male

DRUGS (5)
  1. ELIDEL [Suspect]
     Indication: DERMATITIS ATOPIC
     Dosage: 1 TUBE PER WEEK
     Route: 061
     Dates: end: 20060101
  2. ELIDEL [Suspect]
     Dates: start: 20021219, end: 20031230
  3. ZOCOR [Concomitant]
     Indication: HYPERCHOLESTEROLAEMIA
  4. SYMBICORT TURBUHALER [Concomitant]
  5. DIPROSONE [Concomitant]

REACTIONS (5)
  - CARCINOID SYNDROME [None]
  - FLUSHING [None]
  - HOT FLUSH [None]
  - NEURON-SPECIFIC ENOLASE INCREASED [None]
  - POSITRON EMISSION TOMOGRAM ABNORMAL [None]
